FAERS Safety Report 7374890-7 (Version None)
Quarter: 2011Q1

REPORT INFORMATION
  Report Type: 
  Country: None (occurrence: None)
  Receive Date: 20110325
  Receipt Date: 20110228
  Transmission Date: 20110831
  Serious: No
  Sender: FDA-Public Use
  Company Number: US-B.I. PHARMACEUTICALS,INC./RIDGEFIELD-2011-BP-02925BP

PATIENT
  Sex: Male

DRUGS (8)
  1. EQUATE STOOL SOFTENER [Concomitant]
  2. SM VIT. D [Concomitant]
  3. PRADAXA [Suspect]
     Dosage: 300 MG
     Route: 048
     Dates: start: 20110108
  4. ZETIA [Concomitant]
     Dosage: 10 MG
  5. FOLIC ACID [Concomitant]
  6. FUROSEMIDE [Concomitant]
     Dosage: 20 MG
  7. PRAVASTATIN [Concomitant]
     Dosage: 40 MG
  8. ISOSORBIDE DINITRATE [Concomitant]
     Dosage: 30 MG

REACTIONS (5)
  - FALL [None]
  - MOVEMENT DISORDER [None]
  - FATIGUE [None]
  - PAIN [None]
  - DECREASED APPETITE [None]
